FAERS Safety Report 4882012-7 (Version None)
Quarter: 2006Q1

REPORT INFORMATION
  Report Type: 
  Country: None (occurrence: None)
  Receive Date: 20060117
  Receipt Date: 20060106
  Transmission Date: 20060701
  Serious: Yes (Hospitalization)
  Sender: FDA-Public Use
  Company Number: FR-AVENTIS-200610061FR

PATIENT
  Age: 72 Year

DRUGS (8)
  1. ARAVA [Suspect]
     Indication: POLYARTHRITIS
     Route: 048
     Dates: start: 20050515, end: 20050610
  2. TOPALGIC [Suspect]
     Route: 048
  3. LEVOTHYROXINE SODIUM [Concomitant]
     Indication: POST PROCEDURAL HYPOTHYROIDISM
     Route: 048
  4. ACETAMINOPHEN [Concomitant]
     Route: 048
  5. IDEOS [Concomitant]
  6. INIPOMP [Concomitant]
     Route: 048
  7. DIFFU K [Concomitant]
     Route: 048
  8. TRIVASTAL [Concomitant]
     Route: 048

REACTIONS (2)
  - ALANINE AMINOTRANSFERASE INCREASED [None]
  - ASPARTATE AMINOTRANSFERASE INCREASED [None]
